FAERS Safety Report 15206422 (Version 1)
Quarter: 2018Q3

REPORT INFORMATION
  Report Type: Spontaneous
  Country: FR (occurrence: FR)
  Receive Date: 20180727
  Receipt Date: 20180727
  Transmission Date: 20181010
  Serious: Yes (Hospitalization)
  Sender: FDA-Public Use
  Company Number: FR-TEVA-2018-FR-931064

PATIENT
  Age: 77 Year
  Sex: Female

DRUGS (6)
  1. IXPRIM 37,5 MG/325 MG, COMPRIM? PELLICUL? [Concomitant]
     Indication: PAIN
     Route: 048
     Dates: end: 20171016
  2. VENLAFAXINE [Suspect]
     Active Substance: VENLAFAXINE HYDROCHLORIDE
     Indication: PRODUCT USED FOR UNKNOWN INDICATION
     Dosage: 75 MILLIGRAM DAILY;
     Route: 048
  3. CELIPROLOL [Concomitant]
     Active Substance: CELIPROLOL
     Indication: MYOCARDIAL ISCHAEMIA
     Dosage: 200 MILLIGRAM DAILY;
     Route: 048
     Dates: end: 20171016
  4. KARDEGIC [Suspect]
     Active Substance: ASPIRIN DL-LYSINE
     Indication: MYOCARDIAL ISCHAEMIA
     Dosage: 1 DOSAGE FORMS DAILY;
     Route: 048
     Dates: end: 20171016
  5. INEXIUM 40 MG, COMPRIM? GASTRO?R?SISTANT [Concomitant]
     Active Substance: ESOMEPRAZOLE
     Route: 048
     Dates: end: 20171016
  6. ATARAX 25 MG, COMPRIM? PELLICUL? S?CABLE [Concomitant]
     Indication: PRODUCT USED FOR UNKNOWN INDICATION
     Route: 048
     Dates: end: 20171016

REACTIONS (2)
  - Subdural haematoma [Not Recovered/Not Resolved]
  - Subarachnoid haemorrhage [Recovered/Resolved]

NARRATIVE: CASE EVENT DATE: 20171016
